FAERS Safety Report 8298509-6 (Version None)
Quarter: 2012Q2

REPORT INFORMATION
  Report Type: 
  Country: None (occurrence: None)
  Receive Date: 20120419
  Receipt Date: 20120309
  Transmission Date: 20120825
  Serious: No
  Sender: FDA-Public Use
  Company Number: US-ABBOTT-12P-163-0914748-00

PATIENT
  Sex: Male

DRUGS (1)
  1. LUPRON DEPOT-PED [Suspect]
     Indication: PRECOCIOUS PUBERTY
     Route: 050
     Dates: start: 20100901

REACTIONS (3)
  - ABNORMAL BEHAVIOUR [None]
  - CHEST PAIN [None]
  - FEELING ABNORMAL [None]
